FAERS Safety Report 8112117-9 (Version None)
Quarter: 2012Q1

REPORT INFORMATION
  Report Type: 
  Country: None (occurrence: None)
  Receive Date: 20120203
  Receipt Date: 20120201
  Transmission Date: 20120608
  Serious: Yes (Other)
  Sender: FDA-Public Use
  Company Number: US-PFIZER INC-2011178995

PATIENT
  Sex: Female

DRUGS (11)
  1. LYRICA [Suspect]
     Dosage: 50 MG, 3X/DAY
     Dates: start: 20110101, end: 20110101
  2. ACETYLSALICYLIC ACID [Concomitant]
     Dosage: 81 MG, UNK
  3. CALCIUM WITH VITAMIN D [Concomitant]
     Dosage: 600 + D
  4. LYRICA [Suspect]
     Indication: NEUROPATHY PERIPHERAL
     Dosage: 50 MG, 2X/DAY
     Route: 048
     Dates: end: 20110101
  5. METFORMIN [Concomitant]
     Dosage: 1000 MG, UNK
  6. SPIRIVA [Concomitant]
     Dosage: 18 UG, UNK
  7. DIAZEPAM [Concomitant]
     Dosage: 5 MG, UNK
  8. PAXIL [Concomitant]
     Dosage: 10 MG, UNK
  9. ATENOLOL [Concomitant]
     Dosage: 100 MG, UNK
  10. COLCHICINE [Concomitant]
     Dosage: 0.6 MG, UNK
  11. SYMBICORT [Concomitant]
     Dosage: UNK

REACTIONS (2)
  - RENAL IMPAIRMENT [None]
  - GLOMERULAR FILTRATION RATE DECREASED [None]
